FAERS Safety Report 11859537 (Version 1)
Quarter: 2015Q4

REPORT INFORMATION
  Report Type: Report from Study
  Country: US (occurrence: US)
  Receive Date: 20151221
  Receipt Date: 20151221
  Transmission Date: 20160305
  Serious: Yes (Death)
  Sender: FDA-Public Use
  Company Number: US-ACTELION-A-US2015-127702

PATIENT
  Age: 71 Year
  Sex: Female
  Weight: 61.7 kg

DRUGS (4)
  1. ADCIRCA [Concomitant]
     Active Substance: TADALAFIL
  2. PEPTO-BISMOL [Concomitant]
     Active Substance: BISMUTH SUBSALICYLATE\CALCIUM CARBONATE
  3. VELETRI [Suspect]
     Active Substance: EPOPROSTENOL
     Indication: PULMONARY HYPERTENSION
     Dosage: 60 NG/KG, PER MIN
     Route: 042
     Dates: start: 20151111
  4. REMODULIN [Suspect]
     Active Substance: TREPROSTINIL
     Indication: PULMONARY HYPERTENSION
     Dosage: 116.5 NG/KG, PER MIN
     Route: 058
     Dates: start: 20150109

REACTIONS (10)
  - Scleroderma [Fatal]
  - Decreased appetite [Unknown]
  - Diarrhoea [Unknown]
  - Dyspnoea [Unknown]
  - Disease progression [Unknown]
  - Swelling [Unknown]
  - Frequent bowel movements [Unknown]
  - Fatigue [Unknown]
  - Faeces discoloured [Unknown]
  - Disease complication [Fatal]

NARRATIVE: CASE EVENT DATE: 201511
